FAERS Safety Report 9802999 (Version 2)
Quarter: 2014Q1

REPORT INFORMATION
  Report Type: Spontaneous
  Country: US (occurrence: None)
  Receive Date: 20140102
  Receipt Date: 20140103
  Transmission Date: 20141002
  Serious: Yes (Death)
  Sender: FDA-Public Use
  Company Number: SYM-2013-14451

PATIENT
  Age: 69 Year
  Sex: Female

DRUGS (1)
  1. XENAZINE [Suspect]
     Indication: HUNTINGTON^S DISEASE
     Dosage: 25 MG EVERY MORNING, 12.5 MG EVERY NOON AND 25 MG EVERY EVENING, ORAL
     Route: 048
     Dates: start: 20120726, end: 20131217

REACTIONS (1)
  - Death [None]
